FAERS Safety Report 14403742 (Version 2)
Quarter: 2018Q1

REPORT INFORMATION
  Report Type: Report from Study
  Country: US (occurrence: US)
  Receive Date: 20180117
  Receipt Date: 20180216
  Transmission Date: 20180509
  Serious: Yes (Other)
  Sender: FDA-Public Use
  Company Number: US-MYLANLABS-2018M1004164

PATIENT
  Age: 85 Year
  Sex: Female
  Weight: 64 kg

DRUGS (1)
  1. CLOZAPINE. [Suspect]
     Active Substance: CLOZAPINE
     Indication: SCHIZOAFFECTIVE DISORDER
     Dosage: 100 MG, HS
     Route: 048
     Dates: start: 20160420, end: 20180119

REACTIONS (5)
  - Red cell distribution width increased [Recovered/Resolved]
  - Lymphocyte percentage increased [Unknown]
  - Neutrophil count increased [Unknown]
  - Neutropenia [Unknown]
  - Lymphocyte percentage decreased [Unknown]

NARRATIVE: CASE EVENT DATE: 20180110
